FAERS Safety Report 9268164 (Version 1)
Quarter: 2013Q2

REPORT INFORMATION
  Report Type: Spontaneous
  Country: US (occurrence: US)
  Receive Date: 20130502
  Receipt Date: 20130502
  Transmission Date: 20140414
  Serious: Yes (Hospitalization)
  Sender: FDA-Public Use
  Company Number: US-ALEXION-A201201685

PATIENT
  Age: 72 Year
  Sex: Male

DRUGS (3)
  1. SOLIRIS 300MG [Suspect]
     Indication: PAROXYSMAL NOCTURNAL HAEMOGLOBINURIA
     Dosage: 600 MG, QW
     Route: 042
     Dates: start: 201206, end: 20120625
  2. NEUPOGEN [Concomitant]
     Dosage: UNK, QOD
  3. CYCLOSPORINE [Concomitant]

REACTIONS (1)
  - Febrile neutropenia [Recovered/Resolved]
